FAERS Safety Report 16673284 (Version 3)
Quarter: 2019Q3

REPORT INFORMATION
  Report Type: Report from Study
  Country: BR (occurrence: BR)
  Receive Date: 20190806
  Receipt Date: 20190919
  Transmission Date: 20191004
  Serious: Yes (Other)
  Sender: FDA-Public Use
  Company Number: PHHY2019BR067023

PATIENT
  Age: 53 Year
  Sex: Female

DRUGS (4)
  1. COSENTYX [Suspect]
     Active Substance: SECUKINUMAB
     Indication: ANKYLOSING SPONDYLITIS
     Dosage: 1 DF (PEN), UNK
     Route: 058
     Dates: start: 20190304
  2. IBUPROFEN. [Suspect]
     Active Substance: IBUPROFEN
     Indication: PRODUCT USED FOR UNKNOWN INDICATION
     Route: 065
  3. COSENTYX [Suspect]
     Active Substance: SECUKINUMAB
     Dosage: UNK
     Route: 058
     Dates: start: 20190901
  4. DIPYRONE [Suspect]
     Active Substance: DIPYRONE
     Indication: PRODUCT USED FOR UNKNOWN INDICATION
     Route: 065

REACTIONS (31)
  - Ankylosing spondylitis [Recovering/Resolving]
  - Gait inability [Recovered/Resolved]
  - Blood pressure decreased [Recovered/Resolved]
  - Uveitis [Unknown]
  - Influenza [Recovering/Resolving]
  - Heart rate increased [Unknown]
  - Mobility decreased [Unknown]
  - Swelling [Recovering/Resolving]
  - Intervertebral disc calcification [Recovering/Resolving]
  - Hypoaesthesia [Recovered/Resolved]
  - Pain in extremity [Recovered/Resolved]
  - Tremor [Not Recovered/Not Resolved]
  - Vision blurred [Recovered/Resolved]
  - Wound [Recovered/Resolved]
  - Neck mass [Unknown]
  - Throat tightness [Unknown]
  - Cough [Recovering/Resolving]
  - Peripheral coldness [Recovered/Resolved]
  - Ocular hyperaemia [Recovered/Resolved]
  - Kyphosis [Unknown]
  - Pain [Recovered/Resolved]
  - Arthralgia [Recovering/Resolving]
  - Gastric disorder [Unknown]
  - Visual impairment [Unknown]
  - Inflammation [Recovered/Resolved]
  - Musculoskeletal stiffness [Unknown]
  - Nervousness [Unknown]
  - Feeling abnormal [Unknown]
  - Dizziness [Recovered/Resolved]
  - Glucose tolerance impaired [Unknown]
  - Joint swelling [Unknown]

NARRATIVE: CASE EVENT DATE: 20190318
